FAERS Safety Report 19670879 (Version 1)
Quarter: 2021Q3

REPORT INFORMATION
  Report Type: Spontaneous
  Country: UA (occurrence: UA)
  Receive Date: 20210806
  Receipt Date: 20210806
  Transmission Date: 20211014
  Serious: Yes (Other)
  Sender: FDA-Public Use
  Company Number: UA-ALLERGAN-2127655US

PATIENT
  Sex: Male
  Weight: 80 kg

DRUGS (1)
  1. CEFTAZIDIME;AVIBACTAM ? BP [Suspect]
     Active Substance: AVIBACTAM SODIUM\CEFTAZIDIME
     Indication: PRODUCT USED FOR UNKNOWN INDICATION
     Dosage: UNK

REACTIONS (4)
  - Sepsis [Unknown]
  - Abscess [Unknown]
  - Incorrect product administration duration [Unknown]
  - Off label use [Unknown]
